FAERS Safety Report 13011834 (Version 1)
Quarter: 2016Q4

REPORT INFORMATION
  Report Type: Report from Study
  Country: None (occurrence: MX)
  Receive Date: 20161209
  Receipt Date: 20161209
  Transmission Date: 20170207
  Serious: Yes (Other)
  Sender: FDA-Public Use
  Company Number: MX-ABBVIE-16K-107-1799581-00

PATIENT
  Sex: Female
  Weight: 74 kg

DRUGS (1)
  1. HUMIRA [Suspect]
     Active Substance: ADALIMUMAB
     Indication: ANKYLOSING SPONDYLITIS
     Route: 058
     Dates: start: 20160912

REACTIONS (11)
  - Body temperature increased [Unknown]
  - Weight decreased [Unknown]
  - Aphonia [Unknown]
  - Secretion discharge [Unknown]
  - Inflammation [Unknown]
  - Immunodeficiency [Unknown]
  - Decreased appetite [Unknown]
  - Suffocation feeling [Unknown]
  - Pneumonia [Unknown]
  - Productive cough [Unknown]
  - Cough [Unknown]
